FAERS Safety Report 5888176-0 (Version None)
Quarter: 2008Q3

REPORT INFORMATION
  Report Type: 
  Country: None (occurrence: None)
  Receive Date: 20080918
  Receipt Date: 20080910
  Transmission Date: 20090109
  Serious: Yes (Hospitalization)
  Sender: FDA-Public Use
  Company Number: JP-ASTRAZENECA-2008AP07190

PATIENT
  Age: 85 Year
  Sex: Female
  Weight: 42 kg

DRUGS (7)
  1. CRESTOR [Suspect]
     Indication: HYPERCHOLESTEROLAEMIA
     Route: 048
     Dates: start: 20061030, end: 20070416
  2. ITOROL [Concomitant]
     Indication: ANGINA PECTORIS
     Route: 048
  3. ASPIRIN [Concomitant]
     Indication: ANGINA PECTORIS
     Route: 048
  4. SIGMART [Concomitant]
     Indication: ANGINA PECTORIS
     Dosage: NUMBER OF SEPARATE DOSAGES UNKNOWN
     Route: 048
  5. BAYMYCARD [Concomitant]
     Indication: ANGINA PECTORIS
     Route: 048
  6. FRANDOL [Concomitant]
     Indication: ANGINA PECTORIS
     Route: 062
  7. LAC-B [Concomitant]
     Indication: ENTEROCOLITIS
     Dosage: NUMBER OF SEPARATE DOSAGES UNKNOWN
     Route: 048

REACTIONS (1)
  - ENTEROCOLITIS [None]
